FAERS Safety Report 8484779-8 (Version None)
Quarter: 2012Q3

REPORT INFORMATION
  Report Type: 
  Country: None (occurrence: None)
  Receive Date: 20120703
  Receipt Date: 20120625
  Transmission Date: 20120928
  Serious: Yes (Hospitalization)
  Sender: FDA-Public Use
  Company Number: GB-JNJFOC-20120605587

PATIENT
  Age: 63 Year
  Sex: Female
  Weight: 74 kg

DRUGS (5)
  1. XARELTO [Suspect]
     Indication: THROMBOSIS PROPHYLAXIS
     Route: 048
     Dates: start: 20120407, end: 20120410
  2. SPIRIVA [Concomitant]
     Indication: ASTHMA
     Route: 055
     Dates: start: 20120309
  3. ACETAMINOPHEN [Concomitant]
     Indication: ANALGESIC THERAPY
     Route: 048
     Dates: start: 20120402
  4. ALBUTEROL SULATE [Concomitant]
     Indication: ASTHMA
     Route: 055
     Dates: start: 20120309
  5. IBUPROFEN [Concomitant]
     Indication: INFLAMMATION
     Route: 048

REACTIONS (2)
  - LIVER FUNCTION TEST ABNORMAL [None]
  - ABDOMINAL PAIN UPPER [None]
